FAERS Safety Report 5019603-9 (Version None)
Quarter: 2006Q2

REPORT INFORMATION
  Report Type: 
  Country: None (occurrence: None)
  Receive Date: 20060601
  Receipt Date: 20060519
  Transmission Date: 20061013
  Serious: Yes (Disabling, Other)
  Sender: FDA-Public Use
  Company Number: 2006037329

PATIENT
  Age: 60 Year
  Sex: Female
  Weight: 81.6475 kg

DRUGS (36)
  1. LYRICA [Suspect]
     Indication: NEURALGIA
     Dosage: 50 MG (50 MG, 1 IN 1 D), ORAL
     Route: 048
     Dates: start: 20051101
  2. ZOLOFT [Suspect]
     Indication: DEPRESSION
     Dosage: 50 MG (DAILY)
  3. NEURONTIN [Suspect]
     Indication: EPILEPSY
  4. EFFEXOR [Suspect]
     Indication: ILL-DEFINED DISORDER
  5. ELAVIL [Suspect]
     Indication: SEDATIVE THERAPY
  6. DEPAKOTE [Suspect]
     Indication: EPILEPSY
  7. AMITRIPTYLINE HCL [Concomitant]
  8. ALOMIDE (LODOXAMIDE) [Concomitant]
  9. ESTRACE [Concomitant]
  10. ACCOLATE [Concomitant]
  11. PROVERA [Concomitant]
  12. PRILOSEC [Concomitant]
  13. PERCOCET [Concomitant]
  14. VALIUM [Concomitant]
  15. ALAMAST (PEMIROLAST POTASSIUM) [Concomitant]
  16. CALTRATE (CALCIUM CARBONATE) [Concomitant]
  17. MULTIVITAMIN [Concomitant]
  18. VITAMIN B COMPLEX CAP [Concomitant]
  19. ESTER-C (CALCIUM ASCORBATE) [Concomitant]
  20. ALLEGRA [Concomitant]
  21. GUAIFENEX LA (GUAIFENESIN) [Concomitant]
  22. ZANTAC [Concomitant]
  23. DARVOCET-N 100 [Concomitant]
  24. IMITREX (SUMATRIPAN SUCCINATE) [Concomitant]
  25. SALINEX NASAL MIST (SODIUM CHLORIDE) [Concomitant]
  26. NASONEX [Concomitant]
  27. CLIMARA [Concomitant]
  28. MIRALAX [Concomitant]
  29. METAMUCIL-2 [Concomitant]
  30. FLOVENT (FLUTICASONE PROPIOANTE) [Concomitant]
  31. ALBUTEROL [Concomitant]
  32. TOPAMAX [Concomitant]
  33. TESSALON [Concomitant]
  34. TETRACYCLINE [Concomitant]
  35. NYSTATIN [Concomitant]
  36. FLEXERIL [Concomitant]

REACTIONS (46)
  - ABDOMINAL PAIN UPPER [None]
  - ALOPECIA [None]
  - ASTHMA [None]
  - BRONCHIAL HYPERACTIVITY [None]
  - BRONCHITIS ACUTE [None]
  - CANDIDIASIS [None]
  - CARDIAC MURMUR [None]
  - CONSTIPATION [None]
  - COUGH [None]
  - DEPRESSED LEVEL OF CONSCIOUSNESS [None]
  - DEPRESSION [None]
  - DIARRHOEA [None]
  - DRUG DOSE OMISSION [None]
  - DRUG EFFECT DECREASED [None]
  - DRUG INTOLERANCE [None]
  - EYE DISORDER [None]
  - EYE PAIN [None]
  - FATIGUE [None]
  - FIBROMYALGIA [None]
  - HYPERSENSITIVITY [None]
  - HYPOAESTHESIA [None]
  - INCREASED UPPER AIRWAY SECRETION [None]
  - MEMORY IMPAIRMENT [None]
  - MIGRAINE [None]
  - MUSCULOSKELETAL STIFFNESS [None]
  - MYALGIA [None]
  - NASAL CONGESTION [None]
  - NAUSEA [None]
  - NEURALGIA [None]
  - NEUROPATHY [None]
  - NODULE [None]
  - OEDEMA [None]
  - OEDEMA PERIPHERAL [None]
  - OVERWEIGHT [None]
  - PAIN [None]
  - PAIN IN EXTREMITY [None]
  - PARALYSIS [None]
  - PHOTOSENSITIVITY REACTION [None]
  - PIGMENTATION DISORDER [None]
  - POOR QUALITY SLEEP [None]
  - RASH [None]
  - RESPIRATORY DISORDER [None]
  - THIRST [None]
  - THYROID NEOPLASM [None]
  - TINNITUS [None]
  - WEIGHT INCREASED [None]
